FAERS Safety Report 7402424-7 (Version None)
Quarter: 2011Q1

REPORT INFORMATION
  Report Type: 
  Country: None (occurrence: None)
  Receive Date: 20110330
  Receipt Date: 20110322
  Transmission Date: 20110831
  Serious: Yes (Life-Threatening, Hospitalization)
  Sender: FDA-Public Use
  Company Number: 2011MA002161

PATIENT
  Age: 69 Year
  Sex: Male

DRUGS (8)
  1. AMLODIPINE [Concomitant]
  2. METOCLOPRAMIDE [Concomitant]
  3. TIMOLOL [Concomitant]
  4. IBUPROFEN [Suspect]
     Indication: TOOTHACHE
     Dosage: ;PO
     Route: 048
     Dates: start: 20110121, end: 20110126
  5. BENDROFLUMETHIAZIDE [Concomitant]
  6. IBUPROFEN [Suspect]
     Indication: TOOTHACHE
     Dosage: ; PO
     Route: 048
     Dates: start: 20110121, end: 20110126
  7. METFORMIN HYDROCHLORIDE [Suspect]
     Indication: TYPE 2 DIABETES MELLITUS
     Dosage: 500 MG;TID;PO
     Route: 048
     Dates: start: 20110105, end: 20110126
  8. SIMVASTATIN [Concomitant]

REACTIONS (3)
  - DIARRHOEA [None]
  - VOMITING [None]
  - RENAL FAILURE ACUTE [None]
